FAERS Safety Report 16173411 (Version 3)
Quarter: 2021Q1

REPORT INFORMATION
  Report Type: Report from Study
  Country: US (occurrence: US)
  Receive Date: 20190409
  Receipt Date: 20210221
  Transmission Date: 20210419
  Serious: No
  Sender: FDA-Public Use
  Company Number: US-HTU-2019US018464

PATIENT
  Sex: Female

DRUGS (2)
  1. VALCHLOR [Suspect]
     Active Substance: MECHLORETHAMINE
     Dosage: UNK, 3/WEEK
     Route: 061
  2. VALCHLOR [Suspect]
     Active Substance: MECHLORETHAMINE
     Indication: CUTANEOUS T-CELL LYMPHOMA
     Dosage: UNK, UNKNOWN
     Route: 061
     Dates: start: 20191116

REACTIONS (11)
  - Intentional dose omission [Unknown]
  - Skin discolouration [Unknown]
  - Pruritus [Unknown]
  - Treatment noncompliance [None]
  - Swelling [Unknown]
  - Rash [Unknown]
  - Wound [Unknown]
  - Night sweats [Unknown]
  - Rash papular [Unknown]
  - Off label use [Unknown]
  - Application site pain [Unknown]
